FAERS Safety Report 20515235 (Version 2)
Quarter: 2022Q2

REPORT INFORMATION
  Report Type: Spontaneous
  Country: US (occurrence: US)
  Receive Date: 20220224
  Receipt Date: 20220408
  Transmission Date: 20220721
  Serious: No
  Sender: FDA-Public Use
  Company Number: US-PFIZER INC-2021655851

PATIENT
  Age: 78 Year
  Sex: Female
  Weight: 50.794 kg

DRUGS (1)
  1. PREMARIN [Suspect]
     Active Substance: ESTROGENS, CONJUGATED
     Indication: Menopause
     Dosage: 1.25 MG, 1X/DAY
     Dates: start: 1975

REACTIONS (1)
  - Energy increased [Unknown]
